FAERS Safety Report 16386112 (Version 1)
Quarter: 2019Q2

REPORT INFORMATION
  Report Type: Spontaneous
  Country: US (occurrence: US)
  Receive Date: 20190603
  Receipt Date: 20190603
  Transmission Date: 20190711
  Serious: No
  Sender: FDA-Public Use
  Company Number: US-ARBOR PHARMACEUTICALS, LLC-US-2018ARB000932

PATIENT
  Age: 68 Year
  Sex: Male

DRUGS (5)
  1. CYMBALTA [Concomitant]
     Active Substance: DULOXETINE HYDROCHLORIDE
     Indication: PRODUCT USED FOR UNKNOWN INDICATION
     Dosage: UNK
  2. NEURONTIN [Concomitant]
     Active Substance: GABAPENTIN
     Indication: NEUROPATHY PERIPHERAL
     Dosage: 600 MG, QD IN THE MORNING
     Dates: start: 1999
  3. LORAZEPAM. [Concomitant]
     Active Substance: LORAZEPAM
     Indication: PAIN
     Dosage: UNK, PRN
  4. OXYCONTIN [Concomitant]
     Active Substance: OXYCODONE HYDROCHLORIDE
     Indication: PAIN
     Dosage: UNK, PRN
  5. HORIZANT [Suspect]
     Active Substance: GABAPENTIN ENACARBIL
     Indication: NEUROPATHY PERIPHERAL
     Dosage: 600 MG, QD AT 6PM
     Dates: start: 2018

REACTIONS (1)
  - Drug effective for unapproved indication [Unknown]

NARRATIVE: CASE EVENT DATE: 2018
